FAERS Safety Report 11347315 (Version 1)
Quarter: 2015Q3

REPORT INFORMATION
  Report Type: Spontaneous
  Country: DE (occurrence: DE)
  Receive Date: 20150806
  Receipt Date: 20150806
  Transmission Date: 20151125
  Serious: Yes (Other)
  Sender: FDA-Public Use
  Company Number: DE-PFIZER INC-2015256397

PATIENT
  Age: 1 Day
  Sex: Female
  Weight: 2.45 kg

DRUGS (8)
  1. SEROQUEL [Suspect]
     Active Substance: QUETIAPINE FUMARATE
     Indication: DEPRESSION
     Dosage: 400 MG, 1X/DAY; INTAKE 0. - 17.3. GESTATIONAL WEEK
     Route: 064
     Dates: start: 20140406, end: 20140806
  2. ATOSIL [Suspect]
     Active Substance: PROMETHAZINE HYDROCHLORIDE
     Indication: DEPRESSION
     Dosage: UNK, AS NEEDED, INTAKE: TRIMESTER: 2ND + 3RD
     Route: 064
  3. SALOFALK [Concomitant]
     Active Substance: MESALAMINE
     Indication: CROHN^S DISEASE
     Dosage: 3000 MG, 1X/DAY; INTAKE 0. - 32.6. GESTATIONAL WEEK
     Route: 064
     Dates: start: 20140406, end: 20141122
  4. FOLIC ACID. [Concomitant]
     Active Substance: FOLIC ACID
     Indication: VITAMIN SUPPLEMENTATION
     Dosage: EXPOSURE IN 2ND TRIMESTER
     Route: 064
  5. TAVOR [Suspect]
     Active Substance: LORAZEPAM
     Indication: DEPRESSION
     Dosage: DOSAGE BETWEEN 1 AND 0.5 MG/D; INTAKE 0. - 32.6. GW, PROBABLY LONGER
     Route: 064
  6. CITALOPRAM [Suspect]
     Active Substance: CITALOPRAM HYDROBROMIDE
     Indication: DEPRESSION
     Dosage: 40 MG, 1X/DAY; INTAKE 0. - 17.1. GESTATIONAL WEEK, PROBABLY LONGER
     Route: 064
     Dates: start: 20140406, end: 20140804
  7. VENLAFAXINE HCL [Suspect]
     Active Substance: VENLAFAXINE HYDROCHLORIDE
     Indication: DEPRESSION
     Dosage: 225 MG, 1X/DAY; INTAKE 0. - 17.1. GESTATIONAL WEEK, PROBABLY LONGER
     Route: 064
     Dates: start: 20140406, end: 20140806
  8. TRUXAL [Suspect]
     Active Substance: CHLORPROTHIXENE
     Indication: DEPRESSION
     Dosage: 50 MG/DAY; IF REQUIRED, INTAKE 0. - 16.6. GESTATIONAL WEEK, PROBABLY LONGER
     Route: 064
     Dates: start: 20140406, end: 20140802

REACTIONS (5)
  - Maternal exposure during pregnancy [Recovered/Resolved]
  - Floppy infant [Recovered/Resolved]
  - Respiratory disorder neonatal [Recovered/Resolved]
  - Premature baby [Recovered/Resolved]
  - Hypotonia neonatal [Recovered/Resolved]

NARRATIVE: CASE EVENT DATE: 20140422
